FAERS Safety Report 10374075 (Version 1)
Quarter: 2014Q3

REPORT INFORMATION
  Report Type: Spontaneous
  Country: US (occurrence: US)
  Receive Date: 20140810
  Receipt Date: 20140810
  Transmission Date: 20150326
  Serious: No
  Sender: FDA-Public Use
  Company Number: US-AMGEN INC.-USASP2014059818

PATIENT
  Age: 47 Year
  Sex: Male

DRUGS (1)
  1. ENBREL [Suspect]
     Active Substance: ETANERCEPT
     Indication: RHEUMATOID ARTHRITIS
     Dosage: 50 MG, QWK
     Route: 058
     Dates: start: 201308

REACTIONS (4)
  - Ligament sprain [Unknown]
  - Anaemia [Unknown]
  - Dizziness [Unknown]
  - Fall [Unknown]

NARRATIVE: CASE EVENT DATE: 20140803
